FAERS Safety Report 25526564 (Version 3)
Quarter: 2025Q3

REPORT INFORMATION
  Report Type: Report from Study
  Country: US (occurrence: US)
  Receive Date: 20250707
  Receipt Date: 20250917
  Transmission Date: 20251020
  Serious: No
  Sender: MALLINCKRODT
  Company Number: US-MALLINCKRODT-MNK202504010

PATIENT
  Age: 73 Year
  Sex: Female

DRUGS (3)
  1. CORTICOTROPIN [Suspect]
     Active Substance: CORTICOTROPIN
     Indication: Dry eye
     Route: 058
     Dates: start: 20250616
  2. CORTICOTROPIN [Suspect]
     Active Substance: CORTICOTROPIN
     Indication: Illness
  3. COSENTYX [Concomitant]
     Active Substance: SECUKINUMAB

REACTIONS (6)
  - Taste disorder [Unknown]
  - Dizziness [Unknown]
  - Gastritis [Unknown]
  - Hyperhidrosis [Unknown]
  - Asthenia [Unknown]
  - Malaise [Unknown]

NARRATIVE: CASE EVENT DATE: 20250101
